FAERS Safety Report 21526353 (Version 1)
Quarter: 2022Q4

REPORT INFORMATION
  Report Type: Report from Study
  Country: US (occurrence: US)
  Receive Date: 20221031
  Receipt Date: 20221031
  Transmission Date: 20230112
  Serious: No
  Sender: FDA-Public Use
  Company Number: US-ABBVIE-22K-163-4510365-00

PATIENT
  Sex: Female

DRUGS (1)
  1. IMBRUVICA [Suspect]
     Active Substance: IBRUTINIB
     Indication: Chronic lymphocytic leukaemia
     Dosage: FORM STRENGTH: 420 MILLIGRAM
     Route: 048
     Dates: start: 20200820, end: 20220910

REACTIONS (5)
  - Contusion [Recovered/Resolved]
  - Wisdom teeth removal [Unknown]
  - Weight increased [Unknown]
  - Hunger [Unknown]
  - Peripheral artery thrombosis [Unknown]
